FAERS Safety Report 25679109 (Version 2)
Quarter: 2025Q4

REPORT INFORMATION
  Report Type: Spontaneous
  Country: JP (occurrence: JP)
  Receive Date: 20250814
  Receipt Date: 20251016
  Transmission Date: 20260117
  Serious: Yes (Other)
  Sender: UCB
  Company Number: JP-UCBJ-CD202510534UCBPHAPROD

PATIENT
  Age: 41 Year

DRUGS (4)
  1. VIMPAT [Suspect]
     Active Substance: LACOSAMIDE
     Indication: Partial seizures
     Dosage: 100 MILLIGRAMS PER DAY
  2. VIMPAT [Suspect]
     Active Substance: LACOSAMIDE
     Dosage: 300 MILLIGRAMS PER DAY
  3. VIMPAT [Suspect]
     Active Substance: LACOSAMIDE
     Dosage: 100 MILLIGRAMS PER DAY
  4. VIMPAT [Suspect]
     Active Substance: LACOSAMIDE
     Dosage: 200 MILLIGRAMS PER DAY

REACTIONS (1)
  - Hypothyroidism [Unknown]
